FAERS Safety Report 13518408 (Version 4)
Quarter: 2017Q2

REPORT INFORMATION
  Report Type: Spontaneous
  Country: ES (occurrence: ES)
  Receive Date: 20170505
  Receipt Date: 20170531
  Transmission Date: 20170830
  Serious: Yes (Other)
  Sender: FDA-Public Use
  Company Number: ES-SA-2017SA080312

PATIENT
  Sex: Male

DRUGS (6)
  1. PARAPRES [Concomitant]
     Active Substance: CANDESARTAN CILEXETIL
  2. OMEPRAZOLE. [Concomitant]
     Active Substance: OMEPRAZOLE
  3. EVOLOCUMAB [Concomitant]
     Active Substance: EVOLOCUMAB
     Dosage: EVERY 15 HOURS
     Route: 058
  4. PRALUENT [Suspect]
     Active Substance: ALIROCUMAB
     Dosage: FREQUENCY - EVENY 1.5 MONTH
     Route: 058
     Dates: start: 201611
  5. ALIROCUMAB PREFILLED PEN [Concomitant]
     Active Substance: ALIROCUMAB
     Dates: start: 201611
  6. ADIRO [Concomitant]
     Active Substance: ASPIRIN

REACTIONS (4)
  - Embolism [Unknown]
  - Cerebral artery embolism [Unknown]
  - Renal embolism [Unknown]
  - Product use issue [Unknown]

NARRATIVE: CASE EVENT DATE: 201611
